FAERS Safety Report 21963135 (Version 1)
Quarter: 2023Q1

REPORT INFORMATION
  Report Type: Report from Study
  Country: US (occurrence: US)
  Receive Date: 20230207
  Receipt Date: 20230207
  Transmission Date: 20230418
  Serious: No
  Sender: FDA-Public Use
  Company Number: US-AMRYT PHARMACEUTICALS DAC-AEGR006149

PATIENT
  Age: 65 Year
  Sex: Female

DRUGS (1)
  1. MYALEPT [Suspect]
     Active Substance: METRELEPTIN
     Indication: Product used for unknown indication
     Dosage: UNK

REACTIONS (4)
  - COVID-19 [Unknown]
  - Viral infection [Unknown]
  - Tinnitus [Unknown]
  - Cough [Unknown]

NARRATIVE: CASE EVENT DATE: 20220801
